FAERS Safety Report 5773353-X (Version None)
Quarter: 2008Q2

REPORT INFORMATION
  Report Type: 
  Country: None (occurrence: None)
  Receive Date: 20080616
  Receipt Date: 20070609
  Transmission Date: 20081010
  Serious: Yes (Death)
  Sender: FDA-Public Use
  Company Number: IT-ELI_LILLY_AND_COMPANY-IT200806001987

PATIENT
  Age: 40 Year
  Sex: Female

DRUGS (3)
  1. ZYPREXA [Suspect]
     Indication: BIPOLAR I DISORDER
     Dates: start: 20040101
  2. PROZAC [Suspect]
     Indication: BIPOLAR I DISORDER
     Dates: start: 20040101, end: 20040101
  3. EFFEXOR [Concomitant]
     Indication: BIPOLAR I DISORDER
     Dates: start: 20040101

REACTIONS (1)
  - DEATH [None]
